FAERS Safety Report 7067830-1 (Version None)
Quarter: 2010Q4

REPORT INFORMATION
  Report Type: 
  Country: None (occurrence: None)
  Receive Date: 20101028
  Receipt Date: 20101020
  Transmission Date: 20110411
  Serious: Yes (Other)
  Sender: FDA-Public Use
  Company Number: JP-JNJFOC-20100908326

PATIENT

DRUGS (1)
  1. DUROTEP MT [Suspect]
     Indication: CANCER PAIN
     Route: 062

REACTIONS (4)
  - GENERAL PHYSICAL CONDITION ABNORMAL [None]
  - NAUSEA [None]
  - RESPIRATORY DEPRESSION [None]
  - VOMITING [None]
